FAERS Safety Report 16313129 (Version 1)
Quarter: 2019Q2

REPORT INFORMATION
  Report Type: Spontaneous
  Country: US (occurrence: US)
  Receive Date: 20190409
  Receipt Date: 20190409
  Transmission Date: 20190711
  Serious: Yes (Death)
  Sender: FDA-Public Use
  Company Number: None

PATIENT
  Age: 77 Year
  Sex: Female

DRUGS (15)
  1. METOPROLOL. [Concomitant]
     Active Substance: METOPROLOL
  2. POTASSIUM C1 [Concomitant]
  3. PROCHLORPERAZIDE [Concomitant]
  4. VITAMIN D2 [Concomitant]
     Active Substance: ERGOCALCIFEROL
  5. ASPIRIN. [Concomitant]
     Active Substance: ASPIRIN
  6. NITROGLYCERINE [Concomitant]
     Active Substance: NITROGLYCERIN
  7. PANTOPRAZOLE [Concomitant]
     Active Substance: PANTOPRAZOLE
  8. TRAMODOL [Concomitant]
     Active Substance: TRAMADOL
  9. MAG-OXIDE [Concomitant]
     Active Substance: MAGNESIUM OXIDE
  10. NYSTATIN. [Concomitant]
     Active Substance: NYSTATIN
  11. GABAPENTIN. [Concomitant]
     Active Substance: GABAPENTIN
  12. MIKORINE [Concomitant]
  13. VERZENIO [Suspect]
     Active Substance: ABEMACICLIB
     Indication: BREAST CANCER
     Route: 048
     Dates: start: 20190218, end: 20190406
  14. TARTZALE [Concomitant]
  15. LEVOTHYROXINE. [Concomitant]
     Active Substance: LEVOTHYROXINE

REACTIONS (1)
  - Death [None]
